FAERS Safety Report 19354680 (Version 3)
Quarter: 2021Q2

REPORT INFORMATION
  Report Type: Report from Study
  Country: US (occurrence: US)
  Receive Date: 20210602
  Receipt Date: 20210621
  Transmission Date: 20210717
  Serious: Yes (Hospitalization)
  Sender: FDA-Public Use
  Company Number: US-JNJFOC-20210555509

PATIENT
  Age: 7 Year
  Sex: Female
  Weight: 18.9 kg

DRUGS (11)
  1. GLYCERIN [GLYCEROL] [Concomitant]
     Active Substance: GLYCERIN
     Route: 054
  2. COLESEVELAM HCL [Concomitant]
     Active Substance: COLESEVELAM HYDROCHLORIDE
  3. BENEFIBER [Concomitant]
     Active Substance: STARCH, WHEAT
  4. ZOMACTON [Concomitant]
     Active Substance: SOMATROPIN
  5. INFLIXIMAB, RECOMBINANT [Suspect]
     Active Substance: INFLIXIMAB
     Indication: CROHN^S DISEASE
     Route: 042
     Dates: start: 20160716, end: 20170330
  6. LOPERAMIDE [Concomitant]
     Active Substance: LOPERAMIDE
  7. IBUPROFEN. [Concomitant]
     Active Substance: IBUPROFEN
  8. CANAKINUMAB. [Concomitant]
     Active Substance: CANAKINUMAB
     Dates: start: 202001
  9. XELJANZ [Concomitant]
     Active Substance: TOFACITINIB CITRATE
  10. CANAKINUMAB. [Concomitant]
     Active Substance: CANAKINUMAB
     Dates: start: 20180416
  11. ZINC GLUCONATE [Concomitant]
     Active Substance: ZINC GLUCONATE

REACTIONS (1)
  - Anaemia [Recovered/Resolved]

NARRATIVE: CASE EVENT DATE: 20210505
